FAERS Safety Report 21887842 (Version 4)
Quarter: 2023Q1

REPORT INFORMATION
  Report Type: Other
  Country: US (occurrence: None)
  Receive Date: 20230120
  Receipt Date: 20230329
  Transmission Date: 20230418
  Serious: Yes (Hospitalization, Other)
  Sender: FDA-Public Use
  Company Number: US-ROCHE-3267270

PATIENT
  Age: 74 Year
  Sex: Male
  Weight: 82.628 kg

DRUGS (24)
  1. ESBRIET [Suspect]
     Active Substance: PIRFENIDONE
     Indication: Pulmonary fibrosis
     Dosage: TAKE 1 TABLET BY MOUTH 3 TIMES A DAY
     Route: 048
  2. ESBRIET [Suspect]
     Active Substance: PIRFENIDONE
     Indication: Idiopathic pulmonary fibrosis
     Route: 048
     Dates: start: 2021, end: 202301
  3. ASPIRIN [Concomitant]
     Active Substance: ASPIRIN
  4. KLONOPIN [Concomitant]
     Active Substance: CLONAZEPAM
  5. PLAVIX [Concomitant]
     Active Substance: CLOPIDOGREL BISULFATE
  6. FLORINEF ACETATE [Concomitant]
     Active Substance: FLUDROCORTISONE ACETATE
  7. NEURONTIN [Concomitant]
     Active Substance: GABAPENTIN
  8. AMARYL [Concomitant]
     Active Substance: GLIMEPIRIDE
  9. GLUCOPHAGE [Concomitant]
     Active Substance: METFORMIN HYDROCHLORIDE
  10. METOPROLOL SUCCINATE [Concomitant]
     Active Substance: METOPROLOL SUCCINATE
  11. NITROSTAT [Concomitant]
     Active Substance: NITROGLYCERIN
  12. OMEGA-3 FATTY ACIDS [Concomitant]
     Active Substance: OMEGA-3 FATTY ACIDS
  13. PROTONIX [Concomitant]
     Active Substance: PANTOPRAZOLE SODIUM
  14. CRESTOR [Concomitant]
     Active Substance: ROSUVASTATIN CALCIUM
  15. FLOMAX [Concomitant]
     Active Substance: TAMSULOSIN HYDROCHLORIDE
  16. MIDODRINE [Concomitant]
     Active Substance: MIDODRINE
  17. TRAZODONE [Concomitant]
     Active Substance: TRAZODONE HYDROCHLORIDE
  18. METFORMIN [Concomitant]
     Active Substance: METFORMIN HYDROCHLORIDE
  19. GABAPENTIN [Concomitant]
     Active Substance: GABAPENTIN
  20. ROSUVASTATIN [Concomitant]
     Active Substance: ROSUVASTATIN
  21. CLOPIDOGREL [Concomitant]
     Active Substance: CLOPIDOGREL BISULFATE
  22. PANTOPRAZOLE [Concomitant]
     Active Substance: PANTOPRAZOLE
  23. FINASTERIDE [Concomitant]
     Active Substance: FINASTERIDE
  24. GLIMEPIRIDE [Concomitant]
     Active Substance: GLIMEPIRIDE

REACTIONS (7)
  - Influenza [Recovered/Resolved]
  - Respiratory disorder [Unknown]
  - COVID-19 [Recovered/Resolved]
  - Fall [Unknown]
  - Renal failure [Recovered/Resolved]
  - Blood pressure decreased [Not Recovered/Not Resolved]
  - Cholelithiasis [Recovered/Resolved]

NARRATIVE: CASE EVENT DATE: 20220101
